FAERS Safety Report 16115817 (Version 1)
Quarter: 2019Q1

REPORT INFORMATION
  Report Type: Report from Study
  Country: None (occurrence: TR)
  Receive Date: 20190326
  Receipt Date: 20190326
  Transmission Date: 20190418
  Serious: Yes (Hospitalization)
  Sender: FDA-Public Use
  Company Number: TR-ABBVIE-19S-161-2714160-00

PATIENT
  Age: 70 Year
  Sex: Female
  Weight: 56 kg

DRUGS (7)
  1. SEREX [Concomitant]
     Indication: PARKINSON^S DISEASE
     Route: 048
     Dates: start: 20190227
  2. DELIX [Concomitant]
     Indication: HYPERTENSION
     Route: 048
     Dates: start: 20190227
  3. MOTILIUM [Concomitant]
     Active Substance: DOMPERIDONE
     Indication: PARKINSON^S DISEASE
     Route: 048
     Dates: start: 20181023
  4. SANELOC [Concomitant]
     Active Substance: METOPROLOL
     Indication: CARDIAC FAILURE
     Route: 048
     Dates: start: 2014
  5. DUODOPA [Suspect]
     Active Substance: CARBIDOPA\LEVODOPA
     Indication: PARKINSON^S DISEASE
     Dosage: MD(ML):7.00 CD(ML):5.00 ED(ML):1.00
     Route: 050
     Dates: start: 20181023
  6. DULESTER [Concomitant]
     Indication: PARKINSON^S DISEASE
     Route: 048
     Dates: start: 2010
  7. RIVOTRIL [Concomitant]
     Active Substance: CLONAZEPAM
     Indication: SLEEP DISORDER
     Route: 048

REACTIONS (2)
  - Syncope [Recovered/Resolved]
  - Cerebral artery embolism [Recovered/Resolved]

NARRATIVE: CASE EVENT DATE: 20190315
